FAERS Safety Report 9734883 (Version 1)
Quarter: 2013Q4

REPORT INFORMATION
  Report Type: Report from Study
  Country: CA (occurrence: CA)
  Receive Date: 20131206
  Receipt Date: 20131206
  Transmission Date: 20140711
  Serious: Yes (Other)
  Sender: FDA-Public Use
  Company Number: CA-JNJFOC-20131118652

PATIENT
  Age: 62 Year
  Sex: Female
  Weight: 132 kg

DRUGS (1)
  1. STELARA [Suspect]
     Indication: PSORIASIS
     Route: 058
     Dates: start: 201208

REACTIONS (1)
  - Non-Hodgkin^s lymphoma [Recovering/Resolving]
